FAERS Safety Report 20434212 (Version 1)
Quarter: 2022Q1

REPORT INFORMATION
  Report Type: Report from Study
  Country: US (occurrence: US)
  Receive Date: 20220206
  Receipt Date: 20220206
  Transmission Date: 20220424
  Serious: Yes (Hospitalization)
  Sender: FDA-Public Use
  Company Number: US-NOVARTISPH-NVSC2022US023232

PATIENT
  Sex: Female

DRUGS (2)
  1. AFINITOR [Suspect]
     Active Substance: EVEROLIMUS
     Indication: Angiomyolipoma
     Dosage: 10 MG, QD
     Route: 048
     Dates: start: 20121022
  2. EVEROLIMUS [Suspect]
     Active Substance: EVEROLIMUS
     Indication: Angiomyolipoma
     Dosage: 10 MG, QD
     Route: 048

REACTIONS (1)
  - Hypervolaemia [Unknown]
